FAERS Safety Report 10932474 (Version 1)
Quarter: 2015Q1

REPORT INFORMATION
  Report Type: Spontaneous
  Country: US (occurrence: None)
  Receive Date: 20150319
  Receipt Date: 20150319
  Transmission Date: 20150721
  Serious: Yes (Hospitalization)
  Sender: FDA-Public Use
  Company Number: None

PATIENT
  Age: 72 Year
  Sex: Female
  Weight: 74.84 kg

DRUGS (2)
  1. DULOXETINE 30MG [Suspect]
     Active Substance: DULOXETINE
     Indication: DEPRESSION
     Route: 048
     Dates: start: 20150213, end: 20150222
  2. DULOXETINE 30MG [Suspect]
     Active Substance: DULOXETINE
     Route: 048
     Dates: start: 20150213, end: 20150222

REACTIONS (12)
  - Dyspepsia [None]
  - Oxygen saturation decreased [None]
  - Oedema peripheral [None]
  - Ischaemic hepatitis [None]
  - Blood pressure decreased [None]
  - Back pain [None]
  - Confusional state [None]
  - Acute hepatic failure [None]
  - Hypoglycaemia [None]
  - Asthenia [None]
  - Abasia [None]
  - Mobility decreased [None]

NARRATIVE: CASE EVENT DATE: 20150223
